FAERS Safety Report 8619904-9 (Version None)
Quarter: 2012Q3

REPORT INFORMATION
  Report Type: 
  Country: None (occurrence: None)
  Receive Date: 20120824
  Receipt Date: 20120810
  Transmission Date: 20120928
  Serious: Yes (Hospitalization, Other)
  Sender: FDA-Public Use
  Company Number: US-RANBAXY-2012US-59181

PATIENT
  Age: 22 Year
  Sex: Female

DRUGS (2)
  1. ACETAMINOPHEN [Suspect]
     Indication: ORAL PAIN
     Dosage: UNK
     Route: 065
  2. TYLENOL [Suspect]
     Indication: TOOTHACHE
     Dosage: 300/30 MG
     Route: 065

REACTIONS (5)
  - ACCIDENTAL OVERDOSE [None]
  - HEPATIC FAILURE [None]
  - FOETAL DEATH [None]
  - MEDICATION ERROR [None]
  - MATERNAL EXPOSURE DURING PREGNANCY [None]
